FAERS Safety Report 5164108-8 (Version None)
Quarter: 2006Q4

REPORT INFORMATION
  Report Type: 
  Country: None (occurrence: None)
  Receive Date: 20061124
  Receipt Date: 20061109
  Transmission Date: 20070319
  Serious: Yes (Death, Other)
  Sender: FDA-Public Use
  Company Number: 2006111665

PATIENT
  Age: 53 Year
  Sex: Female

DRUGS (5)
  1. LITHIUM CARBONATE [Suspect]
  2. TRAMADOL HCL [Suspect]
     Dosage: ORAL
     Route: 048
  3. LAMOTRIGINE [Suspect]
     Dosage: ORAL
     Route: 048
  4. OLANZAPINE [Suspect]
     Dosage: ORAL
     Route: 048
  5. VENLAFAXINE HCL [Suspect]

REACTIONS (18)
  - ANOXIC ENCEPHALOPATHY [None]
  - BLOOD CREATINE PHOSPHOKINASE INCREASED [None]
  - BLOOD CREATININE INCREASED [None]
  - BLOOD GLUCOSE INCREASED [None]
  - BLOOD POTASSIUM INCREASED [None]
  - BLOOD UREA DECREASED [None]
  - BODY TEMPERATURE DECREASED [None]
  - BRAIN DEATH [None]
  - CARDIAC ARREST [None]
  - COMA [None]
  - COMPLETED SUICIDE [None]
  - CORNEAL REFLEX DECREASED [None]
  - DECUBITUS ULCER [None]
  - DRUG TOXICITY [None]
  - EXTENSOR PLANTAR RESPONSE [None]
  - RESPIRATORY RATE DECREASED [None]
  - RHYTHM IDIOVENTRICULAR [None]
  - VENTRICULAR FIBRILLATION [None]
